FAERS Safety Report 8310470-4 (Version None)
Quarter: 2012Q2

REPORT INFORMATION
  Report Type: 
  Country: None (occurrence: None)
  Receive Date: 20120425
  Receipt Date: 20120413
  Transmission Date: 20120825
  Serious: Yes (Hospitalization, Other)
  Sender: FDA-Public Use
  Company Number: GB-ROCHE-1045264

PATIENT
  Sex: Male
  Weight: 117 kg

DRUGS (14)
  1. RANIBIZUMAB [Suspect]
     Indication: DIABETIC RETINAL OEDEMA
     Route: 050
     Dates: start: 20111004
  2. DULOXETINE HYDROCHLORIDE [Concomitant]
     Dates: start: 20051215
  3. WARFARIN SODIUM [Concomitant]
     Dates: start: 20091026
  4. BISOPROLOL FUMARATE [Concomitant]
     Dates: start: 19990119
  5. AMITRIPTYLINE HCL [Concomitant]
     Dates: start: 20051215
  6. NOVORAPID [Concomitant]
     Dates: start: 19900101
  7. GLUCOPHAGE [Concomitant]
     Dates: start: 19900101
  8. FENOFIBRATE [Concomitant]
     Dates: start: 20080221
  9. LANTUS [Concomitant]
     Dates: start: 19900101
  10. ROSUVASTATIN [Concomitant]
     Dates: start: 20080220
  11. PERINDOPRIL [Concomitant]
     Dates: start: 20080221
  12. EPLERENONE [Concomitant]
     Dates: start: 20080221
  13. BUMETANIDE [Concomitant]
     Dates: start: 19900101
  14. NITROGLYCERIN [Concomitant]
     Dates: start: 20060515

REACTIONS (5)
  - RENAL FAILURE ACUTE [None]
  - CHEST PAIN [None]
  - HYPERGLYCAEMIA [None]
  - HEAD INJURY [None]
  - CONFUSIONAL STATE [None]
